FAERS Safety Report 12750578 (Version 1)
Quarter: 2016Q3

REPORT INFORMATION
  Report Type: Spontaneous
  Country: US (occurrence: US)
  Receive Date: 20160915
  Receipt Date: 20160915
  Transmission Date: 20161109
  Serious: No
  Sender: FDA-Public Use
  Company Number: US-ASTELLAS-2016US000567

PATIENT
  Age: 77 Year
  Sex: Male

DRUGS (1)
  1. XTANDI [Suspect]
     Active Substance: ENZALUTAMIDE
     Indication: PROSTATE CANCER
     Route: 065

REACTIONS (7)
  - Balance disorder [Unknown]
  - Sinusitis [Recovered/Resolved]
  - Tremor [Unknown]
  - Fall [Unknown]
  - Ligament sprain [Unknown]
  - Fatigue [Not Recovered/Not Resolved]
  - Lung disorder [Unknown]

NARRATIVE: CASE EVENT DATE: 20160104
